FAERS Safety Report 7442380-9 (Version None)
Quarter: 2011Q2

REPORT INFORMATION
  Report Type: 
  Country: None (occurrence: None)
  Receive Date: 20110421
  Receipt Date: 20110421
  Transmission Date: 20111010
  Serious: Yes (Life-Threatening, Hospitalization)
  Sender: FDA-Public Use
  Company Number: None

PATIENT
  Sex: Female
  Weight: 120.2032 kg

DRUGS (1)
  1. LEFLUNOMIDE [Suspect]
     Indication: RHEUMATOID ARTHRITIS
     Dosage: 10 MG/2+ 1X MOUTH
     Route: 048
     Dates: start: 20110126, end: 20110306

REACTIONS (6)
  - ULCER [None]
  - RENAL FAILURE [None]
  - HAEMORRHAGE [None]
  - APHAGIA [None]
  - CONFUSIONAL STATE [None]
  - ANURIA [None]
